FAERS Safety Report 4666057-8 (Version None)
Quarter: 2005Q2

REPORT INFORMATION
  Report Type: 
  Country: None (occurrence: None)
  Receive Date: 20050519
  Receipt Date: 20050513
  Transmission Date: 20051028
  Serious: Yes (Hospitalization)
  Sender: FDA-Public Use
  Company Number: CH-ROCHE-404905

PATIENT
  Age: 40 Year
  Sex: Female

DRUGS (3)
  1. XENICAL [Suspect]
     Indication: OBESITY
     Route: 048
     Dates: start: 20030615, end: 20050412
  2. TOFRANIL [Suspect]
     Dosage: DOSAGE REPORTED AS 275 MG (4-3-4)
     Route: 048
     Dates: start: 19980615
  3. MS CONTIN [Suspect]
     Route: 048
     Dates: start: 20000615

REACTIONS (3)
  - ABDOMINAL PAIN LOWER [None]
  - HEPATOCELLULAR DAMAGE [None]
  - HEPATOMEGALY [None]
